FAERS Safety Report 20933082 (Version 1)
Quarter: 2022Q2

REPORT INFORMATION
  Report Type: Spontaneous
  Country: US (occurrence: US)
  Receive Date: 20220608
  Receipt Date: 20220608
  Transmission Date: 20220721
  Serious: No
  Sender: FDA-Public Use
  Company Number: US-REGENERON PHARMACEUTICALS, INC.-2022-52193

PATIENT

DRUGS (1)
  1. EYLEA [Suspect]
     Active Substance: AFLIBERCEPT
     Indication: Diabetic retinopathy
     Dosage: UNK, MONTHLY
     Route: 031

REACTIONS (6)
  - Therapeutic response shortened [Unknown]
  - Metamorphopsia [Unknown]
  - Visual impairment [Unknown]
  - Altered visual depth perception [Unknown]
  - Photophobia [Unknown]
  - Night blindness [Unknown]
